FAERS Safety Report 5959900-3 (Version None)
Quarter: 2008Q4

REPORT INFORMATION
  Report Type: 
  Country: None (occurrence: None)
  Receive Date: 20081119
  Receipt Date: 20081119
  Transmission Date: 20090506
  Serious: Yes (Life-Threatening, Hospitalization)
  Sender: FDA-Public Use
  Company Number: None

PATIENT
  Sex: Female
  Weight: 78 kg

DRUGS (1)
  1. LITHIUM CARBONATE [Suspect]
     Indication: BIPOLAR DISORDER
     Dosage: 600MG ONCE (OD) PO
     Route: 048
     Dates: end: 20080623

REACTIONS (6)
  - DIABETIC COMPLICATION [None]
  - DISORIENTATION [None]
  - HYPERNATRAEMIA [None]
  - MENTAL STATUS CHANGES [None]
  - OVERDOSE [None]
  - SUICIDE ATTEMPT [None]
